FAERS Safety Report 4779685-6 (Version None)
Quarter: 2005Q3

REPORT INFORMATION
  Report Type: 
  Country: None (occurrence: None)
  Receive Date: 20050914
  Receipt Date: 20040927
  Transmission Date: 20060218
  Serious: Yes (Hospitalization)
  Sender: FDA-Public Use
  Company Number: 163-20785-03010234

PATIENT
  Age: 52 Year
  Sex: Female

DRUGS (13)
  1. THALOMID [Suspect]
     Indication: MULTIPLE MYELOMA
     Dosage: 100 MG, QD, ORAL
     Route: 048
     Dates: start: 20010619, end: 20021210
  2. DEXAMETHASONE [Suspect]
     Indication: MULTIPLE MYELOMA
     Dosage: 40 MG, ORAL
     Route: 048
     Dates: start: 20020924, end: 20020927
  3. DEXAMETHASONE [Suspect]
     Indication: MULTIPLE MYELOMA
     Dosage: 40 MG, ORAL
     Route: 048
     Dates: start: 20031101, end: 20031104
  4. DEXAMETHASONE [Suspect]
     Indication: MULTIPLE MYELOMA
     Dosage: 40 MG, ORAL
     Route: 048
     Dates: start: 20040501, end: 20040504
  5. DEXAMETHASONE [Suspect]
     Indication: MULTIPLE MYELOMA
     Dosage: 40 MG, ORAL
     Route: 048
     Dates: start: 20040509, end: 20040512
  6. DEXAMETHASONE [Suspect]
     Indication: MULTIPLE MYELOMA
     Dosage: 40 MG, ORAL
     Route: 048
     Dates: start: 20040517, end: 20040520
  7. CYTOXAN [Suspect]
     Indication: MULTIPLE MYELOMA
     Dosage: 300 MG
     Dates: start: 20020924, end: 20020927
  8. ETOPOSIDE [Suspect]
     Indication: MULTIPLE MYELOMA
     Dosage: 30 MG
     Dates: start: 20020924, end: 20020927
  9. CISPLATIN [Suspect]
     Indication: MULTIPLE MYELOMA
     Dosage: 15 MG/M2
     Dates: start: 20020924, end: 20020927
  10. VAD [Concomitant]
  11. DCEP [Concomitant]
  12. CAD [Concomitant]
  13. MELPHALAN (MELPHALAN) (UNKNOWN) [Concomitant]

REACTIONS (6)
  - CHILLS [None]
  - DEHYDRATION [None]
  - DIARRHOEA [None]
  - PNEUMONIA [None]
  - PYREXIA [None]
  - SINUSITIS [None]
